FAERS Safety Report 21524927 (Version 1)
Quarter: 2022Q4

REPORT INFORMATION
  Report Type: Report from Study
  Country: DE (occurrence: DE)
  Receive Date: 20221030
  Receipt Date: 20221030
  Transmission Date: 20230112
  Serious: Yes (Hospitalization, Other)
  Sender: FDA-Public Use
  Company Number: DE-EMA-DD-20221012-7180173-074023

PATIENT
  Sex: Female

DRUGS (10)
  1. METHOTREXATE [Suspect]
     Active Substance: METHOTREXATE
     Indication: Rheumatoid arthritis
     Dosage: 15 MILLIGRAM, UNIT DOSE : 15 MG,  THERAPY END DATE : ASKU
     Route: 065
     Dates: start: 20180108
  2. METHOTREXATE [Suspect]
     Active Substance: METHOTREXATE
     Dosage: 15 MILLIGRAM, UNIT DOSE : 15 MG,  THERAPY END DATE : ASKU
     Route: 065
     Dates: start: 20160711
  3. METHOTREXATE [Suspect]
     Active Substance: METHOTREXATE
     Dosage: 15 MILLIGRAM, UNIT DOSE : 15 MG,  THERAPY END DATE : ASKU
     Route: 065
     Dates: start: 20170607
  4. METHOTREXATE [Suspect]
     Active Substance: METHOTREXATE
     Dosage: 15 MILLIGRAM, UNIT DOSE : 15 MG,  THERAPY END DATE : ASKU
     Route: 065
     Dates: start: 20160126
  5. METHOTREXATE [Suspect]
     Active Substance: METHOTREXATE
     Dosage: 15 MILLIGRAM, UNIT DOSE : 15 MG,  THERAPY END DATE : ASKU
     Route: 065
     Dates: start: 20190725
  6. METHOTREXATE [Suspect]
     Active Substance: METHOTREXATE
     Dosage: 15 MILLIGRAM, UNIT DOSE : 15 MG,  THERAPY END DATE : ASKU
     Route: 065
     Dates: start: 20161220
  7. METHOTREXATE [Suspect]
     Active Substance: METHOTREXATE
     Dosage: 15 MILLIGRAM, UNIT DOSE : 15 MG,  THERAPY END DATE : ASKU
     Route: 065
     Dates: start: 20160502
  8. METHOTREXATE [Suspect]
     Active Substance: METHOTREXATE
     Dosage: 17.5 MILLIGRAM, UNIT DOSE : 17.5 MG,  THERAPY END DATE : ASKU
     Route: 065
     Dates: start: 20190207
  9. METHOTREXATE [Suspect]
     Active Substance: METHOTREXATE
     Dosage: 17.5 MILLIGRAM, UNIT DOSE : 17.5 MG,  THERAPY END DATE : ASKU
     Route: 065
     Dates: start: 20180821
  10. ORENCIA [Suspect]
     Active Substance: ABATACEPT
     Indication: Rheumatoid arthritis
     Dosage: 125 MILLIGRAM, UNIT DOSE : 125 MG, DURATION : 3 YEARS
     Route: 065
     Dates: start: 201601, end: 201902

REACTIONS (3)
  - Steatohepatitis [Unknown]
  - Rheumatoid arthritis [Recovered/Resolved]
  - Diarrhoea [Unknown]

NARRATIVE: CASE EVENT DATE: 20190723
